FAERS Safety Report 25632360 (Version 2)
Quarter: 2025Q3

REPORT INFORMATION
  Report Type: Spontaneous
  Country: BR (occurrence: BR)
  Receive Date: 20250801
  Receipt Date: 20250811
  Transmission Date: 20251020
  Serious: Yes (Life-Threatening, Disabling, Other)
  Sender: SANOFI AVENTIS
  Company Number: BR-SA-2016SA008866

PATIENT
  Age: 47 Year
  Sex: Male

DRUGS (4)
  1. CAPECITABINE [Suspect]
     Active Substance: CAPECITABINE
     Indication: Rectal cancer metastatic
     Dosage: 2000 MG/M2,QD
  2. FLUOROURACIL [Suspect]
     Active Substance: FLUOROURACIL
     Indication: Rectal cancer metastatic
     Dosage: UNK UNK, QW
  3. OXALIPLATIN [Suspect]
     Active Substance: OXALIPLATIN
     Indication: Rectal cancer metastatic
     Dosage: UNK UNK, QW
  4. LEUCOVORIN [Suspect]
     Active Substance: LEUCOVORIN\LEUCOVORIN CALCIUM
     Indication: Rectal cancer metastatic
     Dosage: UNK UNK, QW

REACTIONS (5)
  - Palmar-plantar erythrodysaesthesia syndrome [Recovered/Resolved]
  - Impaired driving ability [Recovered/Resolved]
  - Fingerprint loss [Recovered/Resolved]
  - Impaired quality of life [Recovered/Resolved]
  - Neuropathy peripheral [Unknown]
